FAERS Safety Report 14925360 (Version 2)
Quarter: 2019Q3

REPORT INFORMATION
  Report Type: Report from Study
  Country: DE (occurrence: DE)
  Receive Date: 20180522
  Receipt Date: 20190819
  Transmission Date: 20191004
  Serious: Yes (Death, Other)
  Sender: FDA-Public Use
  Company Number: DE-BRISTOL-MYERS SQUIBB COMPANY-BMS-2018-045842

PATIENT
  Age: 78 Year
  Sex: Female
  Weight: 58 kg

DRUGS (1)
  1. APIXABAN [Suspect]
     Active Substance: APIXABAN
     Indication: EMBOLISM VENOUS
     Dosage: 5 MILLIGRAM, BID
     Route: 048
     Dates: start: 20170615, end: 20180114

REACTIONS (4)
  - Neoplasm malignant [Fatal]
  - Intracranial tumour haemorrhage [Fatal]
  - Fall [Unknown]
  - Brain neoplasm [Fatal]

NARRATIVE: CASE EVENT DATE: 20180114
